FAERS Safety Report 24865064 (Version 1)
Quarter: 2025Q1

REPORT INFORMATION
  Report Type: Spontaneous
  Country: US (occurrence: US)
  Receive Date: 20250121
  Receipt Date: 20250121
  Transmission Date: 20250409
  Serious: No
  Sender: AMGEN
  Company Number: US-AMGEN-USASP2025008058

PATIENT
  Sex: Female

DRUGS (4)
  1. TEPROTUMUMAB [Suspect]
     Active Substance: TEPROTUMUMAB
     Indication: Endocrine ophthalmopathy
     Dosage: UNK, Q3WK
     Route: 065
  2. TEPROTUMUMAB [Suspect]
     Active Substance: TEPROTUMUMAB
     Dosage: FOUR DOSES, Q3WK
     Route: 065
  3. MYCOPHENOLATE MOFETIL [Concomitant]
     Active Substance: MYCOPHENOLATE MOFETIL
     Indication: Endocrine ophthalmopathy
     Dosage: 500 MILLIGRAM, BID
     Route: 065
  4. TOCILIZUMAB [Concomitant]
     Active Substance: TOCILIZUMAB
     Indication: Endocrine ophthalmopathy
     Dosage: 162 MILLIGRAM, Q2WK
     Route: 065

REACTIONS (2)
  - Hyperglycaemia [Unknown]
  - Glycosylated haemoglobin [Unknown]
